FAERS Safety Report 26042518 (Version 2)
Quarter: 2025Q4

REPORT INFORMATION
  Report Type: Report from Study
  Country: US (occurrence: US)
  Receive Date: 20251113
  Receipt Date: 20251212
  Transmission Date: 20260118
  Serious: Yes (Other)
  Sender: MALLINCKRODT
  Company Number: US-MALLINCKRODT-MNK202501200

PATIENT
  Sex: Female

DRUGS (7)
  1. CORTICOTROPIN [Suspect]
     Active Substance: CORTICOTROPIN
     Indication: Rheumatoid arthritis
     Dosage: UNKNOWN
  2. CORTICOTROPIN [Suspect]
     Active Substance: CORTICOTROPIN
     Dosage: 40 UNITS
  3. CORTICOTROPIN [Suspect]
     Active Substance: CORTICOTROPIN
     Dosage: 80 UNITS
     Dates: start: 20250325
  4. ENBREL [Concomitant]
     Active Substance: ETANERCEPT
     Dosage: UNKNOWN
     Dates: start: 20250218
  5. COSENTYX [Concomitant]
     Active Substance: SECUKINUMAB
     Dosage: UNKNOWN
     Dates: start: 20251104, end: 2025
  6. COSENTYX [Concomitant]
     Active Substance: SECUKINUMAB
     Dates: start: 2025
  7. HUMIRA [Concomitant]
     Active Substance: ADALIMUMAB
     Dosage: UNKNOWN

REACTIONS (3)
  - Heart rate abnormal [Unknown]
  - Blood pressure increased [Recovering/Resolving]
  - Pain in extremity [Unknown]
